FAERS Safety Report 20170798 (Version 1)
Quarter: 2021Q4

REPORT INFORMATION
  Report Type: Spontaneous
  Country: US (occurrence: None)
  Receive Date: 20211210
  Receipt Date: 20211210
  Transmission Date: 20220303
  Serious: Yes (Hospitalization)
  Sender: FDA-Public Use
  Company Number: None

PATIENT
  Age: 67 Year
  Sex: Male

DRUGS (1)
  1. WARFARIN [Suspect]
     Active Substance: WARFARIN
     Dosage: FREQUENCY : DAILY;?
     Route: 048

REACTIONS (7)
  - Treatment noncompliance [None]
  - Anticoagulation drug level above therapeutic [None]
  - Venous thrombosis limb [None]
  - Deep vein thrombosis [None]
  - Deep vein thrombosis [None]
  - Cognitive disorder [None]
  - Haemorrhage [None]

NARRATIVE: CASE EVENT DATE: 20210318
